FAERS Safety Report 5449595-X (Version None)
Quarter: 2007Q3

REPORT INFORMATION
  Report Type: 
  Country: None (occurrence: None)
  Receive Date: 20070912
  Receipt Date: 20070905
  Transmission Date: 20080115
  Serious: Yes (Hospitalization)
  Sender: FDA-Public Use
  Company Number: PHBS2007BR13454

PATIENT
  Age: 5 Year
  Sex: Female
  Weight: 19 kg

DRUGS (5)
  1. FRISIUM [Concomitant]
     Indication: HYDROCEPHALUS
     Dosage: 10 MG/DAY
     Route: 048
  2. TRILEPTAL [Suspect]
     Indication: CONVULSION
     Dosage: 3.5 ML, BID
     Route: 048
  3. TRILEPTAL [Suspect]
     Dosage: 7 ML, BID
  4. TRILEPTAL [Suspect]
     Dosage: 7.5 ML, BID
  5. TRILEPTAL [Suspect]
     Dosage: 10 ML, BID

REACTIONS (2)
  - CONVULSION [None]
  - INTESTINAL PERFORATION [None]
